FAERS Safety Report 9493878 (Version 2)
Quarter: 2013Q3

REPORT INFORMATION
  Report Type: Report from Study
  Country: AU (occurrence: AU)
  Receive Date: 20130902
  Receipt Date: 20130902
  Transmission Date: 20140515
  Serious: Yes (Other)
  Sender: FDA-Public Use
  Company Number: AU-ROCHE-1253692

PATIENT
  Sex: 0

DRUGS (4)
  1. ALTEPLASE [Suspect]
     Indication: PLEURAL INFECTION
     Route: 034
  2. ALTEPLASE [Suspect]
     Indication: OFF LABEL USE
  3. DORNASE ALFA [Suspect]
     Indication: PLEURAL INFECTION
     Route: 034
  4. DORNASE ALFA [Suspect]
     Indication: OFF LABEL USE

REACTIONS (1)
  - Haemothorax [Recovered/Resolved]
